FAERS Safety Report 6032324-9 (Version None)
Quarter: 2009Q1

REPORT INFORMATION
  Report Type: 
  Country: None (occurrence: None)
  Receive Date: 20090109
  Receipt Date: 20090105
  Transmission Date: 20090719
  Serious: Yes (Life-Threatening)
  Sender: FDA-Public Use
  Company Number: US-JNJFOC-20081100503

PATIENT
  Age: 60 Year
  Sex: Female
  Weight: 57 kg

DRUGS (7)
  1. DORIBAX [Suspect]
     Indication: BACTERIAL SEPSIS
     Route: 041
  2. ZOSYN [Concomitant]
  3. VANCOMYCIN HYDROCHLORIDE [Concomitant]
  4. KLONOPIN [Concomitant]
  5. LEXAPRO [Concomitant]
  6. PROTONIX [Concomitant]
  7. LEVOTHYROXINE SODIUM [Concomitant]

REACTIONS (1)
  - ENCEPHALOPATHY [None]
